FAERS Safety Report 6755366-4 (Version None)
Quarter: 2010Q2

REPORT INFORMATION
  Report Type: 
  Country: None (occurrence: None)
  Receive Date: 20100604
  Receipt Date: 20100525
  Transmission Date: 20101027
  Serious: Yes (Other)
  Sender: FDA-Public Use
  Company Number: JP-PFIZER INC-2010066597

PATIENT
  Age: 3 Year
  Sex: Male

DRUGS (6)
  1. ZITHROMAX [Suspect]
     Indication: TONSILLITIS
     Dosage: 1.4 G/DAY
     Route: 048
     Dates: start: 20100524, end: 20100525
  2. PERIACTIN [Concomitant]
     Indication: RHINORRHOEA
     Dosage: UNK
     Route: 048
     Dates: start: 20100524, end: 20100525
  3. TRANSAMIN [Concomitant]
     Indication: TONSILLITIS
     Dosage: UNK
     Route: 048
     Dates: start: 20100524, end: 20100525
  4. ASVERIN [Concomitant]
     Indication: COUGH
     Dosage: UNK
     Route: 048
     Dates: start: 20100524, end: 20100525
  5. MUCODYNE [Concomitant]
     Indication: PRODUCTIVE COUGH
     Dosage: UNK
     Route: 048
     Dates: start: 20100524, end: 20100525
  6. HOKUNALIN [Concomitant]
     Indication: BRONCHITIS
     Dosage: UNK
     Dates: start: 20100524, end: 20100525

REACTIONS (2)
  - HYPOTHERMIA [None]
  - PALLOR [None]
